FAERS Safety Report 7779916-4 (Version None)
Quarter: 2011Q3

REPORT INFORMATION
  Report Type: 
  Country: None (occurrence: None)
  Receive Date: 20110927
  Receipt Date: 20110920
  Transmission Date: 20111222
  Serious: Yes (Life-Threatening, Other)
  Sender: FDA-Public Use
  Company Number: GB-ASTELLAS-2011EU006423

PATIENT
  Age: 20 Month
  Sex: Male
  Weight: 12.5 kg

DRUGS (5)
  1. FLUCONAZOLE [Interacting]
     Indication: CANDIDIASIS
     Dosage: 3 MG/KG, UNKNOWN/D
     Route: 048
  2. FLUCONAZOLE [Interacting]
     Dosage: 3 MG/KG, UNKNOWN/D
     Route: 042
  3. TACROLIMUS [Interacting]
     Indication: RENAL TRANSPLANT
     Dosage: 2.5 MG, BID
     Route: 065
  4. AZATHIOPRINE [Suspect]
     Indication: RENAL TRANSPLANT
     Dosage: UNK
     Route: 065
  5. METHYLPREDNISOLONE [Suspect]
     Indication: RENAL TRANSPLANT
     Dosage: UNK
     Route: 065

REACTIONS (9)
  - PERITONEAL CANDIDIASIS [None]
  - CANDIDA SEPSIS [None]
  - SEPTIC SHOCK [None]
  - DRUG INTERACTION [None]
  - STRABISMUS [None]
  - LOSS OF CONSCIOUSNESS [None]
  - FUNGAL PERITONITIS [None]
  - COMPLICATIONS OF TRANSPLANTED KIDNEY [None]
  - IMMUNOSUPPRESSANT DRUG LEVEL INCREASED [None]
